FAERS Safety Report 8873976 (Version 1)
Quarter: 2012Q4

REPORT INFORMATION
  Report Type: 
  Country: US (occurrence: US)
  Receive Date: 20121030
  Receipt Date: 20121030
  Transmission Date: 20130627
  Serious: Yes (Other)
  Sender: FDA-Public Use
  Company Number: PHHY2012US094489

PATIENT
  Age: 76 Year
  Sex: Male

DRUGS (4)
  1. ACETYLSALICYLIC ACID [Suspect]
     Indication: TRANSIENT ISCHAEMIC ATTACK
     Dosage: 1 DF, daily dose
     Route: 048
     Dates: start: 2008
  2. PLAVIX [Concomitant]
     Indication: TRANSIENT ISCHAEMIC ATTACK
     Dates: start: 2008
  3. FISH OIL [Concomitant]
     Indication: TRANSIENT ISCHAEMIC ATTACK
     Dates: start: 2008
  4. LORATADINE [Concomitant]
     Dosage: 1 DF, daily 1
     Route: 048

REACTIONS (3)
  - Gastric ulcer perforation [Not Recovered/Not Resolved]
  - Gastric ulcer haemorrhage [Recovered/Resolved]
  - Incorrect drug administration duration [Unknown]
